FAERS Safety Report 25782607 (Version 1)
Quarter: 2025Q3

REPORT INFORMATION
  Report Type: Spontaneous
  Country: TW (occurrence: TW)
  Receive Date: 20250909
  Receipt Date: 20250909
  Transmission Date: 20251020
  Serious: Yes (Death, Hospitalization, Other)
  Sender: BRISTOL-MYERS SQUIBB COMPANY
  Company Number: TW-BRISTOL-MYERS SQUIBB COMPANY-2025-124098

PATIENT
  Age: 52 Year
  Sex: Female
  Weight: 58.9 kg

DRUGS (4)
  1. YERVOY [Suspect]
     Active Substance: IPILIMUMAB
     Indication: Hepatocellular carcinoma
  2. YERVOY [Suspect]
     Active Substance: IPILIMUMAB
  3. OPDIVO [Suspect]
     Active Substance: NIVOLUMAB
     Indication: Hepatocellular carcinoma
  4. OPDIVO [Suspect]
     Active Substance: NIVOLUMAB

REACTIONS (2)
  - Acinetobacter bacteraemia [Fatal]
  - Septic shock [Fatal]

NARRATIVE: CASE EVENT DATE: 20250801
